FAERS Safety Report 9364374 (Version 1)
Quarter: 2013Q2

REPORT INFORMATION
  Report Type: Spontaneous
  Country: GB (occurrence: GB)
  Receive Date: 20130624
  Receipt Date: 20130624
  Transmission Date: 20140414
  Serious: Yes (Life-Threatening, Hospitalization)
  Sender: FDA-Public Use
  Company Number: GB-ASTRAZENECA-2013SE47911

PATIENT
  Age: 51 Year
  Sex: Female

DRUGS (8)
  1. PROPANOL [Suspect]
     Dosage: 10 MG TWENTY TWO PER DAY
     Route: 065
     Dates: start: 20130328, end: 20130328
  2. QUETIAPINE [Suspect]
     Dosage: 300 MG TWENTY FOUR PER DAY
     Route: 065
     Dates: start: 20130328, end: 20130328
  3. PARACETAMOL [Suspect]
     Dosage: 500 MG SIXTEEN PER DAY
     Route: 065
     Dates: start: 20130328, end: 20130328
  4. DOXYCYCLINE [Suspect]
     Route: 065
     Dates: start: 20130328, end: 20130328
  5. ZAPONEX [Suspect]
     Route: 048
     Dates: start: 20080601, end: 20090802
  6. ZAPONEX [Suspect]
     Route: 048
     Dates: start: 20090803, end: 200908
  7. ZAPONEX [Suspect]
     Route: 048
     Dates: start: 20090803, end: 201304
  8. ZAPONEX [Suspect]
     Route: 048
     Dates: start: 201304

REACTIONS (6)
  - Overdose [Recovered/Resolved]
  - Blood albumin decreased [Recovered/Resolved]
  - Protein total decreased [Recovered/Resolved]
  - Blood alkaline phosphatase increased [Not Recovered/Not Resolved]
  - Gamma-glutamyltransferase increased [Not Recovered/Not Resolved]
  - Hypotension [Unknown]
